FAERS Safety Report 12157226 (Version 1)
Quarter: 2016Q1

REPORT INFORMATION
  Report Type: Spontaneous
  Country: BR (occurrence: BR)
  Receive Date: 20160308
  Receipt Date: 20160308
  Transmission Date: 20160526
  Serious: Yes (Hospitalization, Other)
  Sender: FDA-Public Use
  Company Number: BR-ROCHE-1721055

PATIENT
  Sex: Female

DRUGS (5)
  1. FOLIFER (ASCORBIC ACID/CYANOCOBALAMIN/FERROUS FUMARATE/FOLIC ACID) [Suspect]
     Active Substance: ASCORBIC ACID\CYANOCOBALAMIN\FERROUS FUMARATE\FOLIC ACID
     Indication: ANAEMIA
     Route: 065
  2. RIVOTRIL [Suspect]
     Active Substance: CLONAZEPAM
     Route: 048
  3. RIVOTRIL [Suspect]
     Active Substance: CLONAZEPAM
     Indication: DEPRESSION
     Route: 048
     Dates: start: 1996
  4. RIVOTRIL [Suspect]
     Active Substance: CLONAZEPAM
     Route: 048
  5. LORAX [Concomitant]
     Active Substance: LORAZEPAM
     Indication: DEPRESSION
     Route: 065
     Dates: start: 1996

REACTIONS (11)
  - Depression [Unknown]
  - Self-medication [Unknown]
  - Eye disorder [Unknown]
  - Blindness [Not Recovered/Not Resolved]
  - Ill-defined disorder [Unknown]
  - Anaemia [Unknown]
  - Visual impairment [Not Recovered/Not Resolved]
  - Sensory disturbance [Unknown]
  - Hypophagia [Unknown]
  - Crying [Unknown]
  - Malaise [Unknown]
